FAERS Safety Report 9863994 (Version 2)
Quarter: 2014Q2

REPORT INFORMATION
  Report Type: Spontaneous
  Country: JP (occurrence: JP)
  Receive Date: 20140203
  Receipt Date: 20140427
  Transmission Date: 20141212
  Serious: Yes (Life-Threatening, Hospitalization)
  Sender: FDA-Public Use
  Company Number: PHHY2014JP011785

PATIENT
  Age: 53 Year
  Sex: Female

DRUGS (3)
  1. MENOAID COMBIPATCH [Suspect]
     Indication: MENOPAUSAL SYMPTOMS
     Dosage: 1 DF, TWICE A WEEK
     Route: 062
     Dates: start: 20131125, end: 20131215
  2. ESTRANA [Concomitant]
     Dosage: UNK UKN, UNK
     Dates: start: 20110415, end: 20131124
  3. ESTRANA [Concomitant]
     Dosage: UNK UKN, UNK
     Dates: start: 20131216, end: 20131219

REACTIONS (2)
  - Anaemia [Recovered/Resolved]
  - Genital haemorrhage [Recovered/Resolved]
